FAERS Safety Report 4335107-0 (Version None)
Quarter: 2004Q2

REPORT INFORMATION
  Report Type: 
  Country: None (occurrence: None)
  Receive Date: 20040408
  Receipt Date: 20040330
  Transmission Date: 20050107
  Serious: Yes (Other)
  Sender: FDA-Public Use
  Company Number: PHBS2004JP04443

PATIENT
  Age: 66 Year
  Sex: Male

DRUGS (1)
  1. DIOVAN [Suspect]
     Indication: RENAL FAILURE CHRONIC
     Dosage: 80 MG/DAY
     Route: 048
     Dates: start: 20030201, end: 20040301

REACTIONS (1)
  - BLOOD CREATINE PHOSPHOKINASE INCREASED [None]
